FAERS Safety Report 8793336 (Version 1)
Quarter: 2012Q4

REPORT INFORMATION
  Report Type: 
  Country: BR (occurrence: BR)
  Receive Date: 20120918
  Receipt Date: 20120918
  Transmission Date: 20130627
  Serious: Yes (Other)
  Sender: FDA-Public Use
  Company Number: PHHY2012BR079699

PATIENT
  Sex: Female
  Weight: 59 kg

DRUGS (3)
  1. DIOVAN [Suspect]
     Indication: HYPERTENSION
     Dosage: 1 tablet per day
     Route: 048
  2. ANGIPRESS [Concomitant]
     Indication: HYPERTENSION
     Dosage: 1 tablet per day
     Route: 048
  3. METFORMIN [Concomitant]
     Indication: GLUCOSE TOLERANCE IMPAIRED
     Dosage: 1 DF, BID
     Route: 048

REACTIONS (9)
  - Lower limb fracture [Recovering/Resolving]
  - Glucose tolerance impaired [Recovered/Resolved]
  - Urinary tract infection [Recovered/Resolved]
  - Weight decreased [Not Recovered/Not Resolved]
  - Gastritis [Recovered/Resolved]
  - Anxiety [Recovered/Resolved]
  - Eating disorder [Recovered/Resolved]
  - Depressed mood [Recovered/Resolved]
  - Insomnia [Not Recovered/Not Resolved]
